FAERS Safety Report 6073783-5 (Version None)
Quarter: 2009Q1

REPORT INFORMATION
  Report Type: 
  Country: None (occurrence: None)
  Receive Date: 20090209
  Receipt Date: 20090209
  Transmission Date: 20090719
  Serious: Yes (Other)
  Sender: FDA-Public Use
  Company Number: None

PATIENT
  Age: 42 Year
  Sex: Female

DRUGS (2)
  1. BUCKLEY'S COLD + SINUS DAY LIQUID GELLS (NCH) [Suspect]
     Indication: SINUS CONGESTION
     Dosage: 1 GELCAP, TWICE 4
     Dates: start: 20090124, end: 20090124
  2. BUCKLEY'S COLD + SINUS NIGHT LIQUID GELS [Suspect]
     Indication: SINUS CONGESTION
     Dosage: 1 DF, QHS ORAL
     Route: 048
     Dates: start: 20090125, end: 20090125

REACTIONS (5)
  - DRUG INEFFECTIVE [None]
  - HALLUCINATION [None]
  - HEADACHE [None]
  - INSOMNIA [None]
  - VISION BLURRED [None]
